FAERS Safety Report 7434027-2 (Version None)
Quarter: 2011Q2

REPORT INFORMATION
  Report Type: 
  Country: None (occurrence: None)
  Receive Date: 20110425
  Receipt Date: 20110329
  Transmission Date: 20111010
  Serious: No
  Sender: FDA-Public Use
  Company Number: US-B.I. PHARMACEUTICALS,INC./RIDGEFIELD-2011-BP-09520BP

PATIENT
  Sex: Female

DRUGS (8)
  1. PRAVASTATIN [Concomitant]
     Indication: BLOOD CHOLESTEROL INCREASED
  2. PROAIR HFA [Concomitant]
     Indication: CHRONIC OBSTRUCTIVE PULMONARY DISEASE
  3. SYNTHROID [Concomitant]
     Indication: HYPOTHYROIDISM
  4. SPIRIVA [Suspect]
     Indication: CHRONIC OBSTRUCTIVE PULMONARY DISEASE
     Dosage: 18 MCG
     Route: 055
     Dates: start: 20110325
  5. HYDROXYZ [Concomitant]
     Indication: ANXIETY
  6. RAMIPRIL [Concomitant]
     Indication: HYPERTENSION
  7. AMLODIPINE [Concomitant]
     Indication: HYPERTENSION
  8. TOPROL-XL [Concomitant]
     Indication: HYPERTENSION

REACTIONS (3)
  - NERVOUSNESS [None]
  - CHEST PAIN [None]
  - DIZZINESS [None]
